FAERS Safety Report 7292047-5 (Version None)
Quarter: 2011Q1

REPORT INFORMATION
  Report Type: 
  Country: None (occurrence: None)
  Receive Date: 20110215
  Receipt Date: 20110202
  Transmission Date: 20110831
  Serious: Yes (Other)
  Sender: FDA-Public Use
  Company Number: GB-BIOGENIDEC-2011BI005027

PATIENT
  Age: 38 Year
  Sex: Female

DRUGS (6)
  1. TEGRETOL [Concomitant]
  2. TYSABRI [Suspect]
     Indication: MULTIPLE SCLEROSIS
     Route: 042
     Dates: start: 20080605, end: 20100826
  3. LYRICA [Concomitant]
  4. SOLIFENACIN [Concomitant]
  5. OXYCONTIN [Concomitant]
  6. SERTRALINE HYDROCHLORIDE [Concomitant]

REACTIONS (1)
  - DEEP VEIN THROMBOSIS [None]
